FAERS Safety Report 5094997-7 (Version None)
Quarter: 2006Q3

REPORT INFORMATION
  Report Type: 
  Country: None (occurrence: None)
  Receive Date: 20060901
  Receipt Date: 20060823
  Transmission Date: 20061208
  Serious: Yes (Hospitalization)
  Sender: FDA-Public Use
  Company Number: US-AVENTIS-200617225US

PATIENT
  Sex: Female

DRUGS (14)
  1. LOVENOX [Suspect]
     Indication: THROMBOSIS PROPHYLAXIS
     Dosage: DOSE: UNK
  2. LOVENOX [Suspect]
  3. LOVENOX [Suspect]
  4. DRUG USED IN DIABETES [Suspect]
     Indication: DIABETES MELLITUS
     Dosage: DOSE: UNK
  5. GLIPIZIDE [Concomitant]
     Dosage: DOSE: UNK
  6. LEVAQUIN [Concomitant]
     Dosage: DOSE: UNK
  7. PROTONIX [Concomitant]
     Dosage: DOSE: UNK
  8. ALLOPURINAOL [Concomitant]
     Dosage: DOSE: UNK
  9. ZOFRAN [Concomitant]
     Dosage: DOSE: UNK
  10. CALCIUM GLUCONATE [Concomitant]
     Dosage: DOSE: UNK
  11. CENTRUM [Concomitant]
     Dosage: DOSE: UNK
  12. IRON SUPPLEMENT [Concomitant]
     Dosage: DOSE: UNK
  13. CO-Q-10 [Concomitant]
     Dosage: DOSE: UNK
  14. TOPROL-XL [Concomitant]
     Dosage: DOSE: UNK

REACTIONS (6)
  - DEEP VEIN THROMBOSIS [None]
  - DEHYDRATION [None]
  - INJECTION SITE BRUISING [None]
  - INJECTION SITE NODULE [None]
  - INJECTION SITE PAIN [None]
  - RENAL FAILURE [None]
